FAERS Safety Report 14582030 (Version 6)
Quarter: 2018Q3

REPORT INFORMATION
  Report Type: Spontaneous
  Country: US (occurrence: US)
  Receive Date: 20180228
  Receipt Date: 20180821
  Transmission Date: 20181010
  Serious: No
  Sender: FDA-Public Use
  Company Number: US-BRISTOL-MYERS SQUIBB COMPANY-BMS-2018-019047

PATIENT
  Sex: Female
  Weight: 145.13 kg

DRUGS (1)
  1. ORENCIA [Suspect]
     Active Substance: ABATACEPT
     Indication: RHEUMATOID ARTHRITIS
     Dosage: 125 MG, QWK
     Route: 058
     Dates: start: 201711

REACTIONS (5)
  - Dyspnoea [Unknown]
  - Nasopharyngitis [Unknown]
  - Urticaria [Unknown]
  - Influenza [Unknown]
  - Cough [Unknown]
